FAERS Safety Report 17210535 (Version 2)
Quarter: 2020Q1

REPORT INFORMATION
  Report Type: Spontaneous
  Country: NL (occurrence: FR)
  Receive Date: 20191227
  Receipt Date: 20200309
  Transmission Date: 20200409
  Serious: Yes (Other)
  Sender: FDA-Public Use
  Company Number: FR-FRESENIUS KABI-FK201914403

PATIENT
  Age: 76 Year
  Sex: Female
  Weight: 55 kg

DRUGS (7)
  1. PACLITAXEL (MANUFACTURER UNKNOWN) [Suspect]
     Active Substance: PACLITAXEL
     Indication: INVASIVE DUCTAL BREAST CARCINOMA
     Route: 042
     Dates: start: 20191002
  2. METHYLPREDNISOLONE. [Concomitant]
     Active Substance: METHYLPREDNISOLONE
     Route: 048
  3. NO DRUG NAME [Suspect]
     Active Substance: UNSPECIFIED INGREDIENT
     Indication: PRODUCT USED FOR UNKNOWN INDICATION
     Route: 048
     Dates: start: 20191115, end: 20191120
  4. ATEZOLIZUMAB. [Suspect]
     Active Substance: ATEZOLIZUMAB
     Indication: INVASIVE DUCTAL BREAST CARCINOMA
     Route: 042
     Dates: start: 20191002
  5. AMOXICILLIN SODIUM/CLAVULANATE POTASSIUM [Suspect]
     Active Substance: AMOXICILLIN\CLAVULANATE POTASSIUM
     Indication: BRONCHITIS
     Route: 048
     Dates: start: 20191115, end: 20191120
  6. RANITIDINE. [Concomitant]
     Active Substance: RANITIDINE
     Route: 048
  7. DEXCHLORPHENIRAMINE [Concomitant]
     Active Substance: DEXCHLORPHENIRAMINE
     Route: 048

REACTIONS (1)
  - Cutaneous lupus erythematosus [Recovered/Resolved]

NARRATIVE: CASE EVENT DATE: 20191123
